FAERS Safety Report 6188139-4 (Version None)
Quarter: 2009Q2

REPORT INFORMATION
  Report Type: 
  Country: None (occurrence: None)
  Receive Date: 20090513
  Receipt Date: 20080319
  Transmission Date: 20091009
  Serious: No
  Sender: FDA-Public Use
  Company Number: A0721240A

PATIENT
  Age: 77 Year
  Sex: Female

DRUGS (4)
  1. DYNACIRC CR [Suspect]
     Indication: BLOOD PRESSURE
     Dosage: 5MG PER DAY
  2. TYLENOL [Concomitant]
     Indication: SLEEP DISORDER
  3. BENADRYL [Concomitant]
     Indication: SLEEP DISORDER
  4. DIAZEPAM [Concomitant]
     Indication: SLEEP DISORDER

REACTIONS (2)
  - ABDOMINAL PAIN UPPER [None]
  - DIARRHOEA [None]
